FAERS Safety Report 17006580 (Version 3)
Quarter: 2019Q4

REPORT INFORMATION
  Report Type: Report from Study
  Country: US (occurrence: US)
  Receive Date: 20191107
  Receipt Date: 20191120
  Transmission Date: 20200122
  Serious: Yes (Death, Hospitalization)
  Sender: FDA-Public Use
  Company Number: US-ACTELION-A-US2019-197682

PATIENT
  Age: 1 Year
  Sex: Female
  Weight: 4.08 kg

DRUGS (3)
  1. BOSENTAN TABLET 32 MG PED US [Suspect]
     Active Substance: BOSENTAN
     Indication: PULMONARY HYPERTENSION
     Dosage: 8.7 MG, BID
     Route: 048
     Dates: start: 201902
  2. REMODULIN [Concomitant]
     Active Substance: TREPROSTINIL
  3. TADALAFIL. [Concomitant]
     Active Substance: TADALAFIL

REACTIONS (2)
  - Cardiopulmonary failure [Fatal]
  - Lung disorder [Unknown]

NARRATIVE: CASE EVENT DATE: 20191107
